FAERS Safety Report 13470643 (Version 1)
Quarter: 2017Q2

REPORT INFORMATION
  Report Type: Spontaneous
  Country: IT (occurrence: IT)
  Receive Date: 20170424
  Receipt Date: 20170424
  Transmission Date: 20170830
  Serious: Yes (Hospitalization, Other)
  Sender: FDA-Public Use
  Company Number: IT-BRISTOL-MYERS SQUIBB COMPANY-BMS-2017-033734

PATIENT
  Age: 89 Year
  Sex: Male

DRUGS (1)
  1. ELIQUIS [Suspect]
     Active Substance: APIXABAN
     Indication: CEREBROVASCULAR ACCIDENT PROPHYLAXIS
     Dosage: 5 MG, QD
     Route: 048
     Dates: start: 20170414, end: 20170415

REACTIONS (3)
  - Duodenal ulcer [Unknown]
  - Gastrointestinal haemorrhage [Recovered/Resolved]
  - Transfusion [Unknown]

NARRATIVE: CASE EVENT DATE: 20170415
